FAERS Safety Report 9467160 (Version 1)
Quarter: 2013Q3

REPORT INFORMATION
  Report Type: Spontaneous
  Country: CA (occurrence: CA)
  Receive Date: 20130820
  Receipt Date: 20130820
  Transmission Date: 20140515
  Serious: Yes (Other)
  Sender: FDA-Public Use
  Company Number: CA-AMGEN-CANSP2013057217

PATIENT
  Age: 75 Year
  Sex: Female

DRUGS (1)
  1. PROLIA [Suspect]
     Indication: OSTEOPOROSIS POSTMENOPAUSAL
     Dosage: UNK
     Route: 065

REACTIONS (9)
  - Palpitations [Unknown]
  - Sensation of heaviness [Unknown]
  - Dyspnoea [Unknown]
  - Disorientation [Unknown]
  - Disturbance in attention [Unknown]
  - Sleep disorder [Unknown]
  - Skin irritation [Unknown]
  - Fatigue [Unknown]
  - Erythema [Unknown]
